FAERS Safety Report 5464255-7 (Version None)
Quarter: 2007Q3

REPORT INFORMATION
  Report Type: 
  Country: None (occurrence: None)
  Receive Date: 20070921
  Receipt Date: 20070917
  Transmission Date: 20080115
  Serious: Yes (Death, Hospitalization)
  Sender: FDA-Public Use
  Company Number: A0068654A

PATIENT
  Age: 26 Year
  Sex: Female
  Weight: 88.45 kg

DRUGS (11)
  1. FLOLAN [Suspect]
     Dosage: 68NGKM PER DAY
     Route: 042
     Dates: start: 19941001, end: 19980101
  2. FUROSEMIDE [Concomitant]
     Dosage: 20MG PER DAY
     Route: 048
     Dates: start: 19940801
  3. POTASSIUM CHLORIDE [Concomitant]
     Dosage: 20MEQ PER DAY
  4. IMODIUM [Concomitant]
  5. IRON [Concomitant]
     Dosage: 325MG TWICE PER DAY
  6. COUMADIN [Concomitant]
     Dosage: 15MG PER DAY
     Route: 048
     Dates: start: 19940801
  7. CLINDAMYCIN HCL [Concomitant]
  8. AMITRIPTYLINE HCL [Concomitant]
     Dosage: 25MG AT NIGHT
  9. LASIX [Concomitant]
  10. BLOOD PRESSURE MEDICATION [Concomitant]
  11. BLOOD THINNER [Concomitant]

REACTIONS (18)
  - ARTHRALGIA [None]
  - DIARRHOEA [None]
  - DYSKINESIA [None]
  - DYSPNOEA [None]
  - ERYTHEMA [None]
  - FEELING HOT [None]
  - HEADACHE [None]
  - HEPATIC FAILURE [None]
  - NAUSEA [None]
  - PAIN IN EXTREMITY [None]
  - PNEUMONIA [None]
  - RASH [None]
  - RENAL FAILURE [None]
  - ROSACEA [None]
  - SEPSIS [None]
  - THROMBOCYTOPENIA [None]
  - THYROID DISORDER [None]
  - VOMITING [None]
